FAERS Safety Report 8511619-0 (Version None)
Quarter: 2012Q3

REPORT INFORMATION
  Report Type: 
  Country: None (occurrence: None)
  Receive Date: 20120716
  Receipt Date: 20120706
  Transmission Date: 20120928
  Serious: Yes (Hospitalization)
  Sender: FDA-Public Use
  Company Number: FR-PFIZER INC-2012167876

PATIENT
  Age: 82 Year
  Sex: Male

DRUGS (6)
  1. INDAPAMIDE [Concomitant]
     Dosage: UNK
  2. LANSOPRAZOLE [Concomitant]
     Dosage: UNK
  3. LERCANIDIPINE [Concomitant]
     Dosage: UNK
  4. PREVISCAN [Suspect]
     Indication: ATRIAL FIBRILLATION
     Dosage: 1 DF, DAILY
     Route: 048
     Dates: end: 20120517
  5. TAMSULOSIN HCL [Concomitant]
     Dosage: UNK
  6. CORDARONE [Suspect]
     Indication: ATRIAL FIBRILLATION
     Dosage: 200 MG, 5 TIMES IN A WEEK
     Route: 048

REACTIONS (1)
  - SUBDURAL HAEMATOMA [None]
